FAERS Safety Report 23408742 (Version 1)
Quarter: 2024Q1

REPORT INFORMATION
  Report Type: Report from Study
  Country: US (occurrence: US)
  Receive Date: 20240117
  Receipt Date: 20240117
  Transmission Date: 20240410
  Serious: Yes (Other)
  Sender: FDA-Public Use
  Company Number: US-ABBVIE-5588058

PATIENT
  Age: 52 Year
  Sex: Male

DRUGS (1)
  1. HUMIRA [Suspect]
     Active Substance: ADALIMUMAB
     Indication: Crohn^s disease
     Route: 058
     Dates: start: 20220628

REACTIONS (3)
  - Coronary artery occlusion [Recovering/Resolving]
  - Weight increased [Recovering/Resolving]
  - Spondylitis [Recovering/Resolving]

NARRATIVE: CASE EVENT DATE: 20231014
